FAERS Safety Report 13780426 (Version 1)
Quarter: 2017Q3

REPORT INFORMATION
  Report Type: Spontaneous
  Country: US (occurrence: US)
  Receive Date: 20170724
  Receipt Date: 20170724
  Transmission Date: 20171127
  Serious: No
  Sender: FDA-Public Use
  Company Number: US-009507513-1707USA006093

PATIENT
  Sex: Female

DRUGS (1)
  1. FOLLISTIM [Suspect]
     Active Substance: FOLLITROPIN
     Dosage: 50 UNIT DOSE, ONCE
     Route: 058

REACTIONS (3)
  - No adverse event [Unknown]
  - Accidental overdose [Unknown]
  - Product use issue [Unknown]
